FAERS Safety Report 24661295 (Version 1)
Quarter: 2024Q4

REPORT INFORMATION
  Report Type: Spontaneous
  Country: US (occurrence: None)
  Receive Date: 20241125
  Receipt Date: 20241125
  Transmission Date: 20250115
  Serious: Yes (Hospitalization, Disabling)
  Sender: Public
  Company Number: None

PATIENT
  Age: 29 Year
  Sex: Female
  Weight: 58.5 kg

DRUGS (10)
  1. LEVOFLOXACIN [Suspect]
     Active Substance: LEVOFLOXACIN
     Indication: Urinary tract infection
     Dosage: OTHER QUANTITY : 1 TABLET(S);?FREQUENCY : DAILY;?
     Route: 048
     Dates: start: 20241111, end: 20241112
  2. DIFLUCAN [Concomitant]
  3. IBUPROFEN [Concomitant]
  4. VITAMIN D3 [Concomitant]
     Active Substance: CHOLECALCIFEROL
  5. VITAMIN B12 [Concomitant]
     Active Substance: CYANOCOBALAMIN
  6. VITAMIN C [Concomitant]
     Active Substance: ASCORBIC ACID
  7. CALCIUM [Concomitant]
  8. MAGNESIUM [Concomitant]
  9. Probiotic [Concomitant]
  10. VITAMINS [Concomitant]
     Active Substance: VITAMINS

REACTIONS (17)
  - Toxicity to various agents [None]
  - Tendon pain [None]
  - Myalgia [None]
  - Muscular weakness [None]
  - Loss of personal independence in daily activities [None]
  - Gait disturbance [None]
  - Exercise tolerance decreased [None]
  - Muscle spasms [None]
  - Neuropathy peripheral [None]
  - Palpitations [None]
  - Anxiety [None]
  - Depression [None]
  - Suicidal ideation [None]
  - Tinnitus [None]
  - Myoclonus [None]
  - Tympanic membrane disorder [None]
  - Ear disorder [None]

NARRATIVE: CASE EVENT DATE: 20241111
